FAERS Safety Report 7736682-6 (Version None)
Quarter: 2011Q3

REPORT INFORMATION
  Report Type: 
  Country: None (occurrence: None)
  Receive Date: 20110908
  Receipt Date: 20110825
  Transmission Date: 20111222
  Serious: Yes (Other)
  Sender: FDA-Public Use
  Company Number: US-JNJFOC-20110901369

PATIENT
  Age: 52 Year
  Sex: Female
  Weight: 72.58 kg

DRUGS (2)
  1. TOPAMAX [Suspect]
     Indication: HEADACHE
     Route: 048
     Dates: start: 20090101, end: 20090101
  2. TOPAMAX [Suspect]
     Dosage: 25MG/EVERY OTHER DAY
     Route: 048
     Dates: start: 20090101, end: 20100101

REACTIONS (3)
  - FATIGUE [None]
  - OPTIC NERVE DISORDER [None]
  - FREQUENT BOWEL MOVEMENTS [None]
